FAERS Safety Report 7715214-2 (Version None)
Quarter: 2011Q3

REPORT INFORMATION
  Report Type: 
  Country: None (occurrence: None)
  Receive Date: 20110829
  Receipt Date: 20110822
  Transmission Date: 20111222
  Serious: Yes (Other)
  Sender: FDA-Public Use
  Company Number: US-SP-2011-07438

PATIENT

DRUGS (1)
  1. TUBERSOL [Suspect]
     Indication: TUBERCULIN TEST
     Route: 023
     Dates: start: 20110801, end: 20110801

REACTIONS (5)
  - BLINDNESS TRANSIENT [None]
  - OXYGEN SATURATION DECREASED [None]
  - PALLOR [None]
  - BLOOD PRESSURE DECREASED [None]
  - HYPERHIDROSIS [None]
